FAERS Safety Report 21952138 (Version 3)
Quarter: 2023Q1

REPORT INFORMATION
  Report Type: Report from Study
  Country: DE (occurrence: DE)
  Receive Date: 20230203
  Receipt Date: 20230310
  Transmission Date: 20230418
  Serious: Yes (Hospitalization)
  Sender: FDA-Public Use
  Company Number: DE-PFIZER INC-PV202300018287

PATIENT
  Age: 73 Year
  Sex: Male
  Weight: 100 kg

DRUGS (31)
  1. ENCORAFENIB [Suspect]
     Active Substance: ENCORAFENIB
     Indication: Malignant melanoma
     Dosage: UNK, 1X/DAY
     Route: 048
     Dates: start: 20221025, end: 20221110
  2. ENCORAFENIB [Suspect]
     Active Substance: ENCORAFENIB
     Dosage: UNK, 1X/DAY
     Route: 048
     Dates: start: 20221118, end: 20221123
  3. ENCORAFENIB [Suspect]
     Active Substance: ENCORAFENIB
     Dosage: UNK, 1X/DAY
     Route: 048
     Dates: start: 20221124, end: 20221129
  4. ENCORAFENIB [Suspect]
     Active Substance: ENCORAFENIB
     Dosage: UNK, 1X/DAY
     Route: 048
     Dates: start: 20221130, end: 20221204
  5. ENCORAFENIB [Suspect]
     Active Substance: ENCORAFENIB
     Dosage: UNK, 1X/DAY
     Route: 048
     Dates: start: 20221205, end: 20221205
  6. ENCORAFENIB [Suspect]
     Active Substance: ENCORAFENIB
     Dosage: UNK, 1X/DAY
     Route: 048
     Dates: start: 20221206, end: 20221206
  7. ENCORAFENIB [Suspect]
     Active Substance: ENCORAFENIB
     Dosage: UNK, 1X/DAY
     Route: 048
     Dates: start: 20221207, end: 20221227
  8. ENCORAFENIB [Suspect]
     Active Substance: ENCORAFENIB
     Dosage: UNK, 1X/DAY
     Route: 048
     Dates: start: 20221228, end: 20230102
  9. ENCORAFENIB [Suspect]
     Active Substance: ENCORAFENIB
     Dosage: UNK, 1X/DAY
     Route: 048
     Dates: start: 20230102, end: 20230116
  10. ENCORAFENIB [Suspect]
     Active Substance: ENCORAFENIB
     Dosage: UNK, 1X/DAY
     Route: 048
     Dates: start: 20230117
  11. BINIMETINIB [Suspect]
     Active Substance: BINIMETINIB
     Indication: Malignant melanoma
     Dosage: UNK, 2X/DAY
     Route: 048
     Dates: start: 20221025, end: 20221110
  12. BINIMETINIB [Suspect]
     Active Substance: BINIMETINIB
     Dosage: UNK, 2X/DAY
     Route: 048
     Dates: start: 20221118, end: 20221122
  13. BINIMETINIB [Suspect]
     Active Substance: BINIMETINIB
     Dosage: UNK, 2X/DAY (MORNING AND AFTERNOON)
     Route: 048
     Dates: start: 20221123, end: 20221123
  14. BINIMETINIB [Suspect]
     Active Substance: BINIMETINIB
     Dosage: UNK, 2X/DAY (MORNING AND AFTERNOON)
     Route: 048
     Dates: start: 20221124, end: 20221128
  15. BINIMETINIB [Suspect]
     Active Substance: BINIMETINIB
     Dosage: UNK, 2X/DAY (MORNING AND AFTERNOON)
     Route: 048
     Dates: start: 20221129, end: 20221129
  16. BINIMETINIB [Suspect]
     Active Substance: BINIMETINIB
     Dosage: UNK, 2X/DAY (MORNING AND AFTERNOON)
     Route: 048
     Dates: start: 20221130, end: 20221204
  17. BINIMETINIB [Suspect]
     Active Substance: BINIMETINIB
     Dosage: UNK, 2X/DAY
     Route: 048
     Dates: start: 20221205, end: 20221205
  18. BINIMETINIB [Suspect]
     Active Substance: BINIMETINIB
     Dosage: UNK, 2X/DAY
     Route: 048
     Dates: start: 20221206, end: 20221206
  19. BINIMETINIB [Suspect]
     Active Substance: BINIMETINIB
     Dosage: UNK, 2X/DAY
     Route: 048
     Dates: start: 20221207, end: 20221227
  20. BINIMETINIB [Suspect]
     Active Substance: BINIMETINIB
     Dosage: UNK, 2X/DAY
     Route: 048
     Dates: start: 20221228, end: 20230102
  21. BINIMETINIB [Suspect]
     Active Substance: BINIMETINIB
     Dosage: UNK, 2X/DAY
     Route: 048
     Dates: start: 20230102, end: 20230116
  22. BINIMETINIB [Suspect]
     Active Substance: BINIMETINIB
     Dosage: UNK, 2X/DAY
     Route: 048
     Dates: start: 20230117
  23. PEMBROLIZUMAB [Suspect]
     Active Substance: PEMBROLIZUMAB
     Indication: Malignant melanoma
     Dosage: 200 MG, DAY 1 EVERY 3 WEEKS (21 DAYS)
     Route: 042
     Dates: start: 20221025
  24. VALSARTAN [Concomitant]
     Active Substance: VALSARTAN
     Indication: Hypertension
     Dosage: 80 MG
     Route: 048
     Dates: start: 202112
  25. ALLOPURINOL [Concomitant]
     Active Substance: ALLOPURINOL
     Indication: Gouty arthritis
     Dosage: 300 MG
     Route: 048
     Dates: start: 202112
  26. ADVANTAN MILK [Concomitant]
     Indication: Rash
     Dosage: 100 G
     Route: 061
     Dates: start: 20221110
  27. METAMIZOL [Concomitant]
     Active Substance: METAMIZOLE SODIUM
     Indication: Arthralgia
     Dosage: 500 MG, IF NECESSARY
     Route: 048
     Dates: start: 20221227
  28. TRAMADOL [Concomitant]
     Active Substance: TRAMADOL
     Indication: Arthralgia
     Dosage: 50 MG, IF NECESSARY
     Route: 048
     Dates: start: 20221227
  29. ETORICOXIB [Concomitant]
     Active Substance: ETORICOXIB
     Indication: Arthralgia
     Dosage: 120 MG, IF NECESSARY
     Route: 048
     Dates: start: 20221223
  30. CALCIUM [Concomitant]
     Active Substance: CALCIUM
     Indication: Prophylaxis
     Dosage: 500 MG, DAILY
     Route: 048
     Dates: start: 20221004
  31. ZOLEDRONIC ACID [Concomitant]
     Active Substance: ZOLEDRONIC ACID
     Indication: Prophylaxis
     Dosage: 4 MG, MONTHLY
     Route: 042
     Dates: start: 20221004

REACTIONS (2)
  - Second primary malignancy [Recovered/Resolved]
  - Squamous cell carcinoma of skin [Recovered/Resolved]

NARRATIVE: CASE EVENT DATE: 20230127
